FAERS Safety Report 9417755 (Version 1)
Quarter: 2013Q3

REPORT INFORMATION
  Report Type: Spontaneous
  Country: US (occurrence: US)
  Receive Date: 20130724
  Receipt Date: 20130724
  Transmission Date: 20140515
  Serious: No
  Sender: FDA-Public Use
  Company Number: US-BAUSCH-BL-2013-001780

PATIENT
  Age: 75 Year
  Sex: Female

DRUGS (1)
  1. OPCON-A [Suspect]
     Indication: HYPERSENSITIVITY
     Dosage: ONE DROP IN EACH EYE TWICE DAILY
     Route: 047
     Dates: start: 20130320, end: 20130321

REACTIONS (3)
  - Rash erythematous [Not Recovered/Not Resolved]
  - Eye pain [Not Recovered/Not Resolved]
  - Ocular hyperaemia [Not Recovered/Not Resolved]
